FAERS Safety Report 24936794 (Version 1)
Quarter: 2025Q1

REPORT INFORMATION
  Report Type: Spontaneous
  Country: US (occurrence: None)
  Receive Date: 20250205
  Receipt Date: 20250205
  Transmission Date: 20250409
  Serious: Yes (Other)
  Sender: FDA-CTU
  Company Number: None

PATIENT
  Age: 45 Year
  Sex: Female
  Weight: 67.95 kg

DRUGS (1)
  1. CHOLINE\INOSITOL\METHIONINE\PYRIDOXINE\RIBOFLAVIN [Suspect]
     Active Substance: CHOLINE\INOSITOL\METHIONINE\PYRIDOXINE\RIBOFLAVIN
     Route: 030

REACTIONS (6)
  - Injection site erythema [None]
  - Injection site pruritus [None]
  - Throat tightness [None]
  - Urticaria [None]
  - Ear discomfort [None]
  - Feeling hot [None]

NARRATIVE: CASE EVENT DATE: 20250205
